FAERS Safety Report 5007078-5 (Version None)
Quarter: 2006Q1

REPORT INFORMATION
  Report Type: 
  Country: None (occurrence: None)
  Receive Date: 20060330
  Receipt Date: 20051220
  Transmission Date: 20060701
  Serious: Yes (Other)
  Sender: FDA-Public Use
  Company Number: 2005171139

PATIENT
  Age: 8 Year
  Sex: Male
  Weight: 36.2878 kg

DRUGS (3)
  1. ZMAX [Suspect]
     Indication: PNEUMONIA
     Dosage: 2 GRAM (2 GRAM, 1 IN 1 D)
     Dates: start: 20051215, end: 20051215
  2. BENADRYL [Concomitant]
  3. UNSPECIFIED MEDICATION FOR SINUSES (ALL OTHER THERAPEUTIC PRODUCTS) [Concomitant]

REACTIONS (3)
  - RASH [None]
  - SWELLING [None]
  - URTICARIA [None]
